FAERS Safety Report 10367241 (Version 1)
Quarter: 2014Q3

REPORT INFORMATION
  Report Type: Spontaneous
  Country: US (occurrence: None)
  Receive Date: 20140805
  Receipt Date: 20140805
  Transmission Date: 20150326
  Serious: Yes (Disabling, Other)
  Sender: FDA-Public Use
  Company Number: None

PATIENT
  Age: 32 Year
  Sex: Female
  Weight: 63.5 kg

DRUGS (1)
  1. OMEPRAZOLE DR [Suspect]
     Active Substance: OMEPRAZOLE
     Indication: GASTROOESOPHAGEAL REFLUX DISEASE
     Route: 048
     Dates: start: 20140527, end: 20140804

REACTIONS (11)
  - Panic attack [None]
  - Hypoaesthesia [None]
  - Lethargy [None]
  - Hypotension [None]
  - Cyanosis [None]
  - Depression [None]
  - Cardiac murmur [None]
  - Heart rate decreased [None]
  - Heart rate irregular [None]
  - Fatigue [None]
  - Paraesthesia [None]

NARRATIVE: CASE EVENT DATE: 20140804
